FAERS Safety Report 22218546 (Version 1)
Quarter: 2023Q2

REPORT INFORMATION
  Report Type: Report from Study
  Country: IT (occurrence: IT)
  Receive Date: 20230417
  Receipt Date: 20230417
  Transmission Date: 20230721
  Serious: Yes (Other)
  Sender: FDA-Public Use
  Company Number: IT-PFIZER INC-PV202300067623

PATIENT
  Sex: Female

DRUGS (3)
  1. VINCRISTINE SULFATE [Suspect]
     Active Substance: VINCRISTINE SULFATE
  2. IFOSFAMIDE [Suspect]
     Active Substance: IFOSFAMIDE
  3. DACTINOMYCIN [Suspect]
     Active Substance: DACTINOMYCIN

REACTIONS (2)
  - Ovarian injury [Unknown]
  - Diminished ovarian reserve [Unknown]
